FAERS Safety Report 6102711-9 (Version None)
Quarter: 2009Q1

REPORT INFORMATION
  Report Type: 
  Country: None (occurrence: None)
  Receive Date: 20090304
  Receipt Date: 20090223
  Transmission Date: 20090719
  Serious: Yes (Death, Hospitalization)
  Sender: FDA-Public Use
  Company Number: US-SANOFI-SYNTHELABO-A03200900760

PATIENT
  Age: 74 Year
  Sex: Male

DRUGS (8)
  1. PLAVIX [Suspect]
     Indication: MYOCARDIAL INFARCTION
     Route: 048
     Dates: start: 20081101
  2. PLAVIX [Suspect]
     Indication: STENT PLACEMENT
     Route: 048
     Dates: start: 20081101
  3. PLAVIX [Suspect]
     Dosage: UNK
     Route: 048
     Dates: start: 20070101, end: 20070101
  4. PLAVIX [Suspect]
     Dosage: UNK
     Route: 048
     Dates: start: 20070101, end: 20070101
  5. LOVENOX [Concomitant]
     Indication: DRUG USE FOR UNKNOWN INDICATION
     Dosage: UNK
     Route: 058
     Dates: start: 20070901, end: 20081119
  6. NITROGLYCERIN [Concomitant]
     Indication: CHEST PAIN
     Dosage: UNK
     Route: 065
     Dates: start: 20090101
  7. MORPHINE [Concomitant]
     Indication: CHEST PAIN
     Dosage: UNK
     Route: 065
     Dates: start: 20090101
  8. OXYGEN [Concomitant]
     Indication: DRUG USE FOR UNKNOWN INDICATION
     Dosage: UNK
     Route: 055

REACTIONS (8)
  - ANOREXIA [None]
  - BLOOD URINE PRESENT [None]
  - CHEST PAIN [None]
  - CONSTIPATION [None]
  - DEATH [None]
  - DYSPNOEA [None]
  - RASH [None]
  - RESTLESSNESS [None]
